FAERS Safety Report 9263966 (Version 1)
Quarter: 2013Q1

REPORT INFORMATION
  Report Type: Spontaneous
  Country: US (occurrence: None)
  Receive Date: 20121212
  Receipt Date: 20121212
  Transmission Date: 20140127
  Serious: No
  Sender: FDA-Public Use
  Company Number: 1210USA008214

PATIENT
  Age: 64 Year
  Sex: Male

DRUGS (3)
  1. RIBAVIRIN [Suspect]
     Indication: HEPATITIS C
     Dates: start: 20120822
  2. PEGASYS [Suspect]
     Indication: HEPATITIS C
     Dates: start: 20120822
  3. VICTRELIS [Suspect]
     Indication: HEPATITIS C
     Dates: start: 20120909

REACTIONS (9)
  - Skin fissures [None]
  - Pruritus [None]
  - Rash [None]
  - Dry skin [None]
  - White blood cell count decreased [None]
  - Red blood cell count decreased [None]
  - Platelet count decreased [None]
  - Headache [None]
  - Fatigue [None]
